FAERS Safety Report 14137319 (Version 1)
Quarter: 2017Q4

REPORT INFORMATION
  Report Type: Spontaneous
  Country: ZA (occurrence: ZA)
  Receive Date: 20171027
  Receipt Date: 20171027
  Transmission Date: 20180321
  Serious: Yes (Other)
  Sender: FDA-Public Use
  Company Number: ZA-PFIZER INC-2017456096

PATIENT
  Sex: Female
  Weight: 72 kg

DRUGS (2)
  1. SALAZOPYRIN [Suspect]
     Active Substance: SULFASALAZINE
     Dosage: , 2X/DAY
     Dates: start: 2014
  2. ARAVA [Suspect]
     Active Substance: LEFLUNOMIDE
     Dosage: UNK
     Dates: start: 2001, end: 2013

REACTIONS (3)
  - Hepatic enzyme increased [Unknown]
  - Malaise [Unknown]
  - Treatment failure [Unknown]
